FAERS Safety Report 5217285-4 (Version None)
Quarter: 2007Q1

REPORT INFORMATION
  Report Type: 
  Country: None (occurrence: None)
  Receive Date: 20070124
  Receipt Date: 20051216
  Transmission Date: 20070707
  Serious: No
  Sender: FDA-Public Use
  Company Number: US-GLAXOSMITHKLINE-A0586135A

PATIENT
  Age: 40 Year
  Sex: Female

DRUGS (3)
  1. PAXIL [Suspect]
     Dosage: 25MG PER DAY
     Route: 048
  2. DILAUDID [Concomitant]
  3. MULTIVITAMIN LIQUID [Concomitant]

REACTIONS (2)
  - ANXIETY [None]
  - DRUG WITHDRAWAL SYNDROME [None]
